FAERS Safety Report 20614617 (Version 2)
Quarter: 2022Q1

REPORT INFORMATION
  Report Type: Spontaneous
  Country: US (occurrence: None)
  Receive Date: 20220321
  Receipt Date: 20220323
  Transmission Date: 20220423
  Serious: Yes (Death)
  Sender: FDA-Public Use
  Company Number: US-ROCHE-3053200

PATIENT
  Age: 82 Year
  Sex: Male

DRUGS (1)
  1. ESBRIET [Suspect]
     Active Substance: PIRFENIDONE
     Indication: Idiopathic pulmonary fibrosis
     Route: 048
     Dates: start: 202201

REACTIONS (3)
  - Idiopathic pulmonary fibrosis [Fatal]
  - Pneumonia [Fatal]
  - Bladder cancer [Fatal]

NARRATIVE: CASE EVENT DATE: 20220314
